FAERS Safety Report 9712620 (Version 1)
Quarter: 2013Q4

REPORT INFORMATION
  Report Type: Spontaneous
  Country: US (occurrence: US)
  Receive Date: 20131126
  Receipt Date: 20131126
  Transmission Date: 20140711
  Serious: No
  Sender: FDA-Public Use
  Company Number: US-BRISTOL-MYERS SQUIBB COMPANY-19206325

PATIENT
  Age: 83 Year
  Sex: Male
  Weight: 87.07 kg

DRUGS (4)
  1. BYDUREON [Suspect]
     Indication: TYPE 2 DIABETES MELLITUS
     Route: 058
     Dates: start: 2013
  2. METFORMIN [Concomitant]
  3. GLYBURIDE [Concomitant]
  4. JANUMET [Concomitant]

REACTIONS (3)
  - Injection site pain [Unknown]
  - Injection site mass [Unknown]
  - Circumstance or information capable of leading to medication error [Unknown]
